FAERS Safety Report 12290227 (Version 1)
Quarter: 2016Q2

REPORT INFORMATION
  Report Type: Report from Study
  Country: US (occurrence: US)
  Receive Date: 20160421
  Receipt Date: 20160421
  Transmission Date: 20160815
  Serious: Yes (Hospitalization)
  Sender: FDA-Public Use
  Company Number: US-TEVA-652685USA

PATIENT
  Age: 68 Year
  Sex: Male
  Weight: 116.4 kg

DRUGS (3)
  1. OFATUMUMAB [Suspect]
     Active Substance: OFATUMUMAB
     Indication: B-CELL LYMPHOMA
     Dosage: CYCLE 1 ON DAY 1
     Route: 042
     Dates: start: 20151012, end: 20151012
  2. VELCADE [Suspect]
     Active Substance: BORTEZOMIB
     Indication: B-CELL LYMPHOMA
     Dosage: CYCLE 1 IV OR SC OVER 3-5 SECONDS ON DAYS 1, 8, 15, AND 22
     Dates: start: 20151012, end: 20151102
  3. BENDAMUSTINE [Suspect]
     Active Substance: BENDAMUSTINE
     Indication: B-CELL LYMPHOMA
     Dosage: CYCLE 1 OVER 30-60 MINUTES ON DAYS 1 AND 2
     Route: 042
     Dates: start: 20151012, end: 20151013

REACTIONS (3)
  - Colitis [Recovered/Resolved]
  - Dehydration [Not Recovered/Not Resolved]
  - Delirium [Recovering/Resolving]

NARRATIVE: CASE EVENT DATE: 20151026
